FAERS Safety Report 4316181-4 (Version None)
Quarter: 2004Q1

REPORT INFORMATION
  Report Type: 
  Country: None (occurrence: None)
  Receive Date: 20040311
  Receipt Date: 20040311
  Transmission Date: 20041129
  Serious: Yes (Other)
  Sender: FDA-Public Use
  Company Number: None

PATIENT
  Sex: Male

DRUGS (12)
  1. GALANTAMINE 4 MG [Suspect]
     Indication: DEMENTIA
     Dosage: 4 MG BID ORAL
     Route: 048
     Dates: start: 20031024, end: 20040203
  2. DOCUSATE [Concomitant]
  3. FOLIC ACID [Concomitant]
  4. MULTI-VITAMIN [Concomitant]
  5. CLOPIDOGREL [Concomitant]
  6. OMEPRAZOLE [Concomitant]
  7. PREDNISONE [Concomitant]
  8. METHOTREXATE [Concomitant]
  9. MISOPROSTOL [Concomitant]
  10. CELECOXIB [Concomitant]
  11. ALENDRONATE SODIUM [Concomitant]
  12. ACETAMINOPHEN [Concomitant]

REACTIONS (1)
  - PRIAPISM [None]
